FAERS Safety Report 14452385 (Version 1)
Quarter: 2018Q1

REPORT INFORMATION
  Report Type: Spontaneous
  Country: US (occurrence: US)
  Receive Date: 20180129
  Receipt Date: 20180129
  Transmission Date: 20180509
  Serious: No
  Sender: FDA-Public Use
  Company Number: US-ALEXION PHARMACEUTICALS INC.-A201800554

PATIENT
  Age: 29 Year
  Sex: Female

DRUGS (3)
  1. SOLIRIS [Suspect]
     Active Substance: ECULIZUMAB
     Indication: ECLAMPSIA
  2. SOLIRIS [Suspect]
     Active Substance: ECULIZUMAB
     Indication: OFF LABEL USE
  3. SOLIRIS [Suspect]
     Active Substance: ECULIZUMAB
     Indication: ACUTE KIDNEY INJURY
     Dosage: 900 MG, UNK
     Route: 065

REACTIONS (1)
  - Off label use [Recovered/Resolved]
